FAERS Safety Report 17076761 (Version 1)
Quarter: 2019Q4

REPORT INFORMATION
  Report Type: Spontaneous
  Country: US (occurrence: US)
  Receive Date: 20191126
  Receipt Date: 20191126
  Transmission Date: 20200122
  Serious: No
  Sender: FDA-Public Use
  Company Number: US-SA-2019SA197405

PATIENT
  Age: 59 Year
  Sex: Female

DRUGS (13)
  1. MAGNESIUM [Concomitant]
     Active Substance: MAGNESIUM
  2. VITAMIN D3 [Concomitant]
     Active Substance: CHOLECALCIFEROL
  3. ESTRADIOL. [Concomitant]
     Active Substance: ESTRADIOL
  4. VITAMINS NOS [Concomitant]
     Active Substance: VITAMINS
  5. MIRTAZAPINE. [Concomitant]
     Active Substance: MIRTAZAPINE
  6. KETOCONAZOLE. [Concomitant]
     Active Substance: KETOCONAZOLE
  7. PROGESTERONE. [Concomitant]
     Active Substance: PROGESTERONE
  8. MELOXICAM. [Concomitant]
     Active Substance: MELOXICAM
  9. DUPIXENT [Suspect]
     Active Substance: DUPILUMAB
     Indication: DERMATITIS ATOPIC
     Dosage: 300 MG, QOW
     Route: 058
     Dates: start: 20190201
  10. PROBIOTIC ACIDOPHILUS [LACTOBACILLUS ACIDOPHILUS] [Concomitant]
  11. SINGULAIR [Concomitant]
     Active Substance: MONTELUKAST SODIUM
  12. MOMETASONE FUROATE. [Concomitant]
     Active Substance: MOMETASONE FUROATE
  13. TRAMADOL HCL [Concomitant]
     Active Substance: TRAMADOL HYDROCHLORIDE

REACTIONS (3)
  - Oedema peripheral [Unknown]
  - Serum sickness [Unknown]
  - Peripheral swelling [Unknown]
